FAERS Safety Report 6291570-X (Version None)
Quarter: 2009Q3

REPORT INFORMATION
  Report Type: 
  Country: None (occurrence: None)
  Receive Date: 20090730
  Receipt Date: 20090730
  Transmission Date: 20100115
  Serious: Yes (Other)
  Sender: FDA-Public Use
  Company Number: None

PATIENT
  Age: 43 Year
  Sex: Female
  Weight: 124.7392 kg

DRUGS (2)
  1. PRISTIQ [Suspect]
     Indication: ANXIETY
     Dosage: 50MG ONCE A DAY PO
     Route: 048
     Dates: start: 20090714, end: 20090724
  2. PRISTIQ [Suspect]
     Indication: DEPRESSION
     Dosage: 50MG ONCE A DAY PO
     Route: 048
     Dates: start: 20090714, end: 20090724

REACTIONS (3)
  - AGGRESSION [None]
  - ANXIETY [None]
  - CRYING [None]
